FAERS Safety Report 11734511 (Version 1)
Quarter: 2015Q4

REPORT INFORMATION
  Report Type: Report from Study
  Country: FR (occurrence: FR)
  Receive Date: 20151113
  Receipt Date: 20151113
  Transmission Date: 20160304
  Serious: Yes (Congenital Anomaly, Other)
  Sender: FDA-Public Use
  Company Number: FR-009507513-1010USA01114B1

PATIENT
  Age: 1 Day
  Sex: Female
  Weight: 1.69 kg

DRUGS (13)
  1. VITAMIN D [Suspect]
     Active Substance: CHOLECALCIFEROL
     Dosage: UNK
     Route: 064
     Dates: start: 201002
  2. ZIAGEN [Suspect]
     Active Substance: ABACAVIR SULFATE
     Route: 064
     Dates: end: 20091001
  3. SPASFON [Suspect]
     Active Substance: PHLOROGLUCINOL
     Dosage: UNK
     Route: 064
  4. CELESTENE [Suspect]
     Active Substance: BETAMETHASONE
     Dosage: UNK
     Route: 064
     Dates: start: 200911
  5. CLAMOXYL [Suspect]
     Active Substance: AMOXICILLIN\CLAVULANIC ACID
     Dosage: UNK
     Route: 064
     Dates: start: 200911
  6. VIREAD [Suspect]
     Active Substance: TENOFOVIR DISOPROXIL FUMARATE
     Dosage: UNK
     Route: 064
     Dates: end: 20100406
  7. RETROVIR [Suspect]
     Active Substance: ZIDOVUDINE
     Route: 064
     Dates: start: 20100406, end: 20100406
  8. LOXEN [Suspect]
     Active Substance: NICARDIPINE HYDROCHLORIDE
     Dosage: UNK
     Route: 064
     Dates: start: 200911
  9. SUSTIVA [Suspect]
     Active Substance: EFAVIRENZ
     Indication: PRODUCT USED FOR UNKNOWN INDICATION
     Route: 064
     Dates: end: 20091001
  10. REYATAZ [Suspect]
     Active Substance: ATAZANAVIR SULFATE
     Indication: PRODUCT USED FOR UNKNOWN INDICATION
     Dosage: UNK
     Route: 064
     Dates: start: 20091119, end: 20100406
  11. ZIAGEN [Suspect]
     Active Substance: ABACAVIR SULFATE
     Dosage: UNK
     Route: 064
     Dates: start: 20091119, end: 20100406
  12. NORVIR [Suspect]
     Active Substance: RITONAVIR
     Dosage: UNK
     Route: 064
     Dates: start: 20091119, end: 20100406
  13. MICARDIS PLUS [Suspect]
     Active Substance: HYDROCHLOROTHIAZIDE\TELMISARTAN
     Dosage: UNK
     Route: 064

REACTIONS (7)
  - Premature baby [Unknown]
  - Congenital tricuspid valve atresia [Unknown]
  - Cardiomegaly [Unknown]
  - Foetal exposure during pregnancy [Recovered/Resolved]
  - Congenital pulmonary valve atresia [Unknown]
  - Neonatal respiratory distress syndrome [Unknown]
  - Ventricular hypoplasia [Unknown]

NARRATIVE: CASE EVENT DATE: 20100406
